FAERS Safety Report 7472987-4 (Version None)
Quarter: 2011Q2

REPORT INFORMATION
  Report Type: 
  Country: None (occurrence: None)
  Receive Date: 20110511
  Receipt Date: 20110504
  Transmission Date: 20111010
  Serious: Yes (Hospitalization, Other)
  Sender: FDA-Public Use
  Company Number: PHFR2011GB02895

PATIENT
  Sex: Female

DRUGS (3)
  1. NEORAL [Suspect]
     Indication: PSORIASIS
     Dosage: UNK DF, UNK
  2. METHOTREXATE [Interacting]
     Dosage: UNK DF, UNK
  3. INFLIXIMAB [Interacting]
     Dosage: UNK DF, UNK

REACTIONS (5)
  - DRUG INTERACTION [None]
  - DELIRIUM [None]
  - RENAL CANCER [None]
  - BLOOD MAGNESIUM DECREASED [None]
  - ACUTE PSYCHOSIS [None]
